FAERS Safety Report 12160258 (Version 1)
Quarter: 2016Q1

REPORT INFORMATION
  Report Type: Spontaneous
  Country: US (occurrence: US)
  Receive Date: 20160308
  Receipt Date: 20160308
  Transmission Date: 20160526
  Serious: No
  Sender: FDA-Public Use
  Company Number: US-AMNEAL PHARMACEUTICALS-2016AMN00133

PATIENT
  Age: 24 Year
  Sex: Male
  Weight: 63.49 kg

DRUGS (1)
  1. SULFAMETHOXAZOLE AND TRIMETHOPRIM [Suspect]
     Active Substance: SULFAMETHOXAZOLE\TRIMETHOPRIM
     Indication: STREPTOCOCCAL INFECTION
     Dosage: 1 TABLETS, 2X/DAY
     Route: 048
     Dates: start: 20150519, end: 20150525

REACTIONS (6)
  - Feeling abnormal [Not Recovered/Not Resolved]
  - Psychological trauma [Not Recovered/Not Resolved]
  - Abnormal behaviour [Not Recovered/Not Resolved]
  - Self-injurious ideation [Not Recovered/Not Resolved]
  - Brain injury [Not Recovered/Not Resolved]
  - Sunburn [Not Recovered/Not Resolved]

NARRATIVE: CASE EVENT DATE: 20150525
